FAERS Safety Report 4527565-3 (Version None)
Quarter: 2004Q4

REPORT INFORMATION
  Report Type: 
  Country: None (occurrence: None)
  Receive Date: 20041215
  Receipt Date: 20041209
  Transmission Date: 20050328
  Serious: Yes (Other)
  Sender: FDA-Public Use
  Company Number: PHNU2004DE04132

PATIENT
  Age: 33 Year
  Sex: Male

DRUGS (1)
  1. RITALIN-SR [Suspect]
     Dosage: 20 MG/DAY
     Route: 048
     Dates: start: 20040401

REACTIONS (1)
  - LICHEN PLANUS [None]
